FAERS Safety Report 8495227-6 (Version None)
Quarter: 2012Q3

REPORT INFORMATION
  Report Type: 
  Country: None (occurrence: None)
  Receive Date: 20120702
  Receipt Date: 20120702
  Transmission Date: 20120928
  Serious: Yes (Life-Threatening)
  Sender: FDA-Public Use
  Company Number: None

PATIENT
  Age: 51 Year
  Sex: Female
  Weight: 70.7611 kg

DRUGS (4)
  1. NITROUS OXIDE N2O PART OF ANTHESIA AIRGAS [Suspect]
     Indication: UTERINE DILATION AND CURETTAGE
     Dates: start: 20081009, end: 20081009
  2. NITROUS OXIDE N2O PART OF ANTHESIA AIRGAS [Suspect]
     Indication: HYSTERECTOMY
     Dates: start: 20081009, end: 20081009
  3. NITROUS OXIDE N2O PART OF ANTHESIA AIRGAS [Suspect]
     Indication: UTERINE DILATION AND CURETTAGE
     Dates: start: 20110620, end: 20110620
  4. NITROUS OXIDE N2O PART OF ANTHESIA AIRGAS [Suspect]
     Indication: HYSTERECTOMY
     Dates: start: 20110620, end: 20110620

REACTIONS (4)
  - CYSTITIS [None]
  - NAUSEA [None]
  - VOMITING [None]
  - CHEST PAIN [None]
